FAERS Safety Report 8363410-6 (Version None)
Quarter: 2012Q2

REPORT INFORMATION
  Report Type: 
  Country: None (occurrence: None)
  Receive Date: 20120516
  Receipt Date: 20120123
  Transmission Date: 20120825
  Serious: Yes (Hospitalization)
  Sender: FDA-Public Use
  Company Number: US-ALEXION PHARMACEUTICALS INC.-A201101629

PATIENT
  Sex: Female

DRUGS (8)
  1. SIMVASTATIN [Concomitant]
     Indication: BLOOD CHOLESTEROL INCREASED
     Dosage: UNK
  2. FOLIC ACID [Concomitant]
     Dosage: UNK
  3. SOLIRIS [Suspect]
     Indication: PAROXYSMAL NOCTURNAL HAEMOGLOBINURIA
     Dosage: UNK
     Route: 042
  4. DABIGATRAN ETEXILATE [Concomitant]
     Dosage: UNK
  5. CALCIUM [Concomitant]
     Dosage: UNK
  6. VITAMIN D [Concomitant]
     Dosage: UNK
  7. FOSAMAX [Concomitant]
     Dosage: UNK, QWK
  8. ASPIRIN [Concomitant]
     Dosage: UNK

REACTIONS (7)
  - NAUSEA [None]
  - HAEMOGLOBIN DECREASED [None]
  - LUMBAR VERTEBRAL FRACTURE [None]
  - PAIN [None]
  - URINARY TRACT INFECTION [None]
  - FALL [None]
  - DIZZINESS [None]
